FAERS Safety Report 8473072-5 (Version None)
Quarter: 2012Q2

REPORT INFORMATION
  Report Type: 
  Country: None (occurrence: None)
  Receive Date: 20120627
  Receipt Date: 20120612
  Transmission Date: 20120825
  Serious: No
  Sender: FDA-Public Use
  Company Number: US-ASTRAZENECA-2012SE36790

PATIENT
  Age: 26 Year
  Sex: Male

DRUGS (2)
  1. SEROQUEL [Suspect]
     Route: 048
  2. SEROQUEL [Suspect]
     Route: 048

REACTIONS (5)
  - MULTIPLE ALLERGIES [None]
  - DRUG DOSE OMISSION [None]
  - FATIGUE [None]
  - POOR QUALITY SLEEP [None]
  - HANGOVER [None]
